FAERS Safety Report 8579212-1 (Version None)
Quarter: 2012Q3

REPORT INFORMATION
  Report Type: 
  Country: None (occurrence: None)
  Receive Date: 20120808
  Receipt Date: 20120807
  Transmission Date: 20120928
  Serious: Yes (Hospitalization, Other)
  Sender: FDA-Public Use
  Company Number: US-ROCHE-1093874

PATIENT
  Sex: Male

DRUGS (3)
  1. COPEGUS [Suspect]
     Indication: HEPATITIS C
     Route: 048
  2. INCIVEK [Suspect]
     Indication: HEPATITIS C
     Route: 048
  3. PEGASYS [Suspect]
     Indication: HEPATITIS C

REACTIONS (3)
  - ANAEMIA [None]
  - TRANSFUSION [None]
  - MALAISE [None]
